FAERS Safety Report 6407044-9 (Version None)
Quarter: 2009Q4

REPORT INFORMATION
  Report Type: 
  Country: None (occurrence: None)
  Receive Date: 20091020
  Receipt Date: 20091008
  Transmission Date: 20100525
  Serious: Yes (Other)
  Sender: FDA-Public Use
  Company Number: PHHY2009FR43692

PATIENT
  Age: 83 Year
  Sex: Male

DRUGS (4)
  1. STALEVO 100 [Suspect]
     Indication: PARKINSON'S DISEASE
     Dosage: (150 MG/37.5 MG/200 MG) 4 DF DAILY
  2. ESOMEPRAZOLE MAGNESIUM [Concomitant]
     Dosage: UNK
  3. TAHOR [Concomitant]
     Dosage: UNK
  4. TAREG [Concomitant]
     Dosage: UNK

REACTIONS (2)
  - DYSPHAGIA [None]
  - OESOPHAGITIS [None]
